FAERS Safety Report 10094937 (Version 2)
Quarter: 2014Q2

REPORT INFORMATION
  Report Type: Spontaneous
  Country: US (occurrence: US)
  Receive Date: 20140422
  Receipt Date: 20140425
  Transmission Date: 20141212
  Serious: Yes (Other)
  Sender: FDA-Public Use
  Company Number: US-RB-065196-14

PATIENT
  Age: 19 Year
  Sex: Female

DRUGS (1)
  1. DELSYM [Suspect]
     Indication: PRODUCT USED FOR UNKNOWN INDICATION
     Dosage: 1 DOSE EVERY 12 HOURS. TOOK NIGHT OF 13-APR-2014 AND AGAIN ON 14-APR-2014 AROUND 7:15 AM
     Route: 048
     Dates: start: 20140413

REACTIONS (5)
  - Tardive dyskinesia [Unknown]
  - Dyskinesia [Not Recovered/Not Resolved]
  - Blood pressure increased [Not Recovered/Not Resolved]
  - Inappropriate affect [Not Recovered/Not Resolved]
  - Unevaluable event [Unknown]
